FAERS Safety Report 21148907 (Version 1)
Quarter: 2022Q3

REPORT INFORMATION
  Report Type: Spontaneous
  Country: GB (occurrence: GB)
  Receive Date: 20220729
  Receipt Date: 20220729
  Transmission Date: 20221026
  Serious: Yes (Other)
  Sender: FDA-Public Use
  Company Number: GB-MHRA-MED-202207250955400970-LSNTV

PATIENT
  Age: 28 Year
  Sex: Female

DRUGS (1)
  1. PROVERA [Suspect]
     Active Substance: MEDROXYPROGESTERONE ACETATE
     Dosage: 10 MG, 3X/DAY
     Dates: start: 20220510

REACTIONS (4)
  - Leukaemia [Not Recovered/Not Resolved]
  - Contusion [Not Recovered/Not Resolved]
  - Condition aggravated [Not Recovered/Not Resolved]
  - Coagulopathy [Not Recovered/Not Resolved]

NARRATIVE: CASE EVENT DATE: 20220501
